FAERS Safety Report 11636758 (Version 1)
Quarter: 2015Q4

REPORT INFORMATION
  Report Type: Spontaneous
  Country: US (occurrence: None)
  Receive Date: 20151015
  Receipt Date: 20151015
  Transmission Date: 20160304
  Serious: Yes (Life-Threatening, Hospitalization)
  Sender: FDA-Public Use
  Company Number: None

PATIENT
  Age: 84 Year
  Sex: Female
  Weight: 91.2 kg

DRUGS (1)
  1. XARELTO [Suspect]
     Active Substance: RIVAROXABAN
     Indication: ATRIAL FIBRILLATION
     Route: 048

REACTIONS (5)
  - Upper gastrointestinal haemorrhage [None]
  - Gastrointestinal ulcer [None]
  - Hypotension [None]
  - Haematocrit decreased [None]
  - Haemoglobin decreased [None]

NARRATIVE: CASE EVENT DATE: 20150913
